FAERS Safety Report 25226789 (Version 1)
Quarter: 2025Q2

REPORT INFORMATION
  Report Type: Spontaneous
  Country: US (occurrence: US)
  Receive Date: 20250422
  Receipt Date: 20250422
  Transmission Date: 20250716
  Serious: No
  Sender: LUNDBECK
  Company Number: US-LUNDBECK-DKLU4013293

PATIENT
  Age: 65 Year
  Sex: Male
  Weight: 63.957 kg

DRUGS (1)
  1. NORTHERA [Suspect]
     Active Substance: DROXIDOPA
     Indication: Orthostatic hypotension
     Dosage: 200 MILLIGRAM
     Route: 048

REACTIONS (3)
  - Malaise [Recovered/Resolved]
  - Mobility decreased [Unknown]
  - Product dose omission issue [Unknown]
